FAERS Safety Report 12645264 (Version 1)
Quarter: 2016Q3

REPORT INFORMATION
  Report Type: Spontaneous
  Country: AU (occurrence: AU)
  Receive Date: 20160811
  Receipt Date: 20160811
  Transmission Date: 20161109
  Serious: Yes (Other)
  Sender: FDA-Public Use
  Company Number: AU-FRESENIUS KABI-FK201605231

PATIENT
  Age: 73 Year
  Sex: Male

DRUGS (2)
  1. FLUCLOXACILLIN [Suspect]
     Active Substance: FLUCLOXACILLIN
     Indication: STAPHYLOCOCCAL INFECTION
     Route: 042
  2. PARACETAMOL (MANUFACTURER UNKNOWN) [Suspect]
     Active Substance: ACETAMINOPHEN
     Indication: PAIN
     Route: 065

REACTIONS (1)
  - Metabolic acidosis [Recovered/Resolved]
